FAERS Safety Report 23842008 (Version 1)
Quarter: 2024Q2

REPORT INFORMATION
  Report Type: Report from Study
  Country: CA (occurrence: CA)
  Receive Date: 20240510
  Receipt Date: 20240510
  Transmission Date: 20240716
  Serious: Yes (Death, Other)
  Sender: FDA-Public Use
  Company Number: CA-PFIZER INC-202400104693

PATIENT
  Age: 79 Year
  Sex: Male

DRUGS (1)
  1. ADALIMUMAB [Suspect]
     Active Substance: ADALIMUMAB\ISOPROPYL ALCOHOL
     Indication: Crohn^s disease
     Dosage: 40 MG 1 EVERY 14 DAYS
     Route: 058

REACTIONS (6)
  - Death [Fatal]
  - Chronic myelomonocytic leukaemia [Fatal]
  - Crohn^s disease [Fatal]
  - Lung disorder [Fatal]
  - Neoplasm malignant [Fatal]
  - Nephropathy [Fatal]
